FAERS Safety Report 9346041 (Version 2)
Quarter: 2013Q2

REPORT INFORMATION
  Report Type: Report from Study
  Country: BD (occurrence: BD)
  Receive Date: 20130613
  Receipt Date: 20130617
  Transmission Date: 20140414
  Serious: Yes (Death, Hospitalization)
  Sender: FDA-Public Use
  Company Number: PHHY2013BD059717

PATIENT
  Age: 77 Year
  Sex: Male

DRUGS (2)
  1. EXELON PATCH [Suspect]
     Indication: DEMENTIA
     Dosage: 4.6 MG (5 CM), DAILY
     Route: 062
     Dates: start: 200906, end: 200907
  2. ANTIHYPERTENSIVES [Concomitant]
     Dosage: UNK UKN, UNK

REACTIONS (5)
  - Cerebrovascular accident [Fatal]
  - Coma [Fatal]
  - Blood glucose decreased [Fatal]
  - Pigmentation disorder [Unknown]
  - Infection [Unknown]
